FAERS Safety Report 4615550-2 (Version None)
Quarter: 2005Q1

REPORT INFORMATION
  Report Type: 
  Country: None (occurrence: None)
  Receive Date: 20050317
  Receipt Date: 20050304
  Transmission Date: 20050727
  Serious: Yes (Other)
  Sender: FDA-Public Use
  Company Number: 2005041230

PATIENT
  Age: 33 Year
  Sex: Female

DRUGS (2)
  1. DEPO-PROVERA [Suspect]
     Indication: ILL-DEFINED DISORDER
     Dosage: 150 MG (150 MG, 1FIRST INJECTION), INTRAMUSCULAR; 150 MG (150 MG, LAST INJECTION), INTRAMUSCULAR
     Route: 030
     Dates: start: 19980804, end: 19980804
  2. DEPO-PROVERA [Suspect]
     Indication: ILL-DEFINED DISORDER
     Dosage: 150 MG (150 MG, 1FIRST INJECTION), INTRAMUSCULAR; 150 MG (150 MG, LAST INJECTION), INTRAMUSCULAR
     Route: 030
     Dates: start: 19981101, end: 19981101

REACTIONS (8)
  - ALOPECIA [None]
  - ARTHRALGIA [None]
  - DEPRESSION [None]
  - LIBIDO DECREASED [None]
  - MOOD SWINGS [None]
  - SUICIDAL IDEATION [None]
  - VAGINAL HAEMORRHAGE [None]
  - WEIGHT INCREASED [None]
